FAERS Safety Report 6982869-X (Version None)
Quarter: 2010Q3

REPORT INFORMATION
  Report Type: 
  Country: None (occurrence: None)
  Receive Date: 20100914
  Receipt Date: 20100415
  Transmission Date: 20110219
  Serious: No
  Sender: FDA-Public Use
  Company Number: US-PFIZER INC-2010048411

PATIENT

DRUGS (3)
  1. LYRICA [Suspect]
     Dosage: UNK
  2. ZOLOFT [Suspect]
     Dosage: UNK
  3. OXYCONTIN [Suspect]
     Dosage: UNK

REACTIONS (2)
  - FATIGUE [None]
  - SOMNOLENCE [None]
